FAERS Safety Report 5562711-4 (Version None)
Quarter: 2007Q4

REPORT INFORMATION
  Report Type: 
  Country: None (occurrence: None)
  Receive Date: 20071211
  Receipt Date: 20071211
  Transmission Date: 20080405
  Serious: Yes (Hospitalization)
  Sender: FDA-Public Use
  Company Number: None

PATIENT
  Age: 37 Year
  Sex: Female
  Weight: 81 kg

DRUGS (2)
  1. NEVIRAPINE [Suspect]
     Indication: HIV INFECTION
     Dosage: 200 MG BD ORAL
     Route: 048
     Dates: start: 20070925
  2. TRUVADA [Suspect]
     Indication: HIV INFECTION
     Dosage: 500 MG QD ORAL
     Route: 048
     Dates: start: 20070925

REACTIONS (22)
  - ABDOMINAL PAIN UPPER [None]
  - BILIARY COLIC [None]
  - BLOOD AMYLASE INCREASED [None]
  - BLOOD CREATININE INCREASED [None]
  - BLOOD GLUCOSE INCREASED [None]
  - BLOOD SODIUM DECREASED [None]
  - CD4 LYMPHOCYTES DECREASED [None]
  - CELLULITIS [None]
  - CHEST X-RAY ABNORMAL [None]
  - GASTROOESOPHAGEAL REFLUX DISEASE [None]
  - HEPATITIS [None]
  - HIATUS HERNIA [None]
  - IMPAIRED GASTRIC EMPTYING [None]
  - INCORRECT DOSE ADMINISTERED [None]
  - LYMPHOMA [None]
  - MALARIA [None]
  - NEUTROPHIL COUNT DECREASED [None]
  - PANCREATIC CYST [None]
  - PANCREATIC MASS [None]
  - PROTEIN TOTAL INCREASED [None]
  - SARCOMA [None]
  - WHITE BLOOD CELL COUNT DECREASED [None]
